FAERS Safety Report 4468027-1 (Version None)
Quarter: 2004Q4

REPORT INFORMATION
  Report Type: 
  Country: None (occurrence: None)
  Receive Date: 20041004
  Receipt Date: 20041004
  Transmission Date: 20050328
  Serious: Yes (Other)
  Sender: FDA-Public Use
  Company Number: None

PATIENT
  Age: 78 Year
  Sex: Male
  Weight: 87.1 kg

DRUGS (21)
  1. DONEPEZIL HCL [Suspect]
  2. CASTOR OIL/PERUVIAN BALSM/TRYPSIN [Concomitant]
  3. RIVASTIGMINE TARTRATE [Concomitant]
  4. CATHETER, FOLEY SILICONE [Concomitant]
  5. DONEPEZIL HCL [Concomitant]
  6. POVIDONE IODINE [Concomitant]
  7. BAG, LEG CONVEEN #5170 [Concomitant]
  8. CARBODOPA 25/LEVODOPA [Concomitant]
  9. OMEPRAZOLE [Concomitant]
  10. ENTACAPONE [Concomitant]
  11. BENZTROPINE MESYLATE [Concomitant]
  12. IRRIGATION KIT W/PISTON SYR [Concomitant]
  13. FOLEY CATHETERIZATION TRAY W.O CATHETER [Concomitant]
  14. SODIUM CHLORIDE 0.9% IRRG SOLN [Concomitant]
  15. BAG, URINE, BEDSIDE [Concomitant]
  16. FINASTERIDE [Concomitant]
  17. PENTOXIFYLLINE [Concomitant]
  18. GLYBURIDE [Concomitant]
  19. MELOXICAM [Concomitant]
  20. SERTRALINE HCL [Concomitant]
  21. SIMVASTATIN [Concomitant]

REACTIONS (1)
  - DIARRHOEA [None]
